FAERS Safety Report 7552514-3 (Version None)
Quarter: 2011Q2

REPORT INFORMATION
  Report Type: 
  Country: None (occurrence: None)
  Receive Date: 20110609
  Receipt Date: 20110518
  Transmission Date: 20111010
  Serious: Yes (Hospitalization)
  Sender: FDA-Public Use
  Company Number: M1102600

PATIENT
  Age: 56 Year
  Sex: Female

DRUGS (3)
  1. FEMOSTAN (ESTRADIOL, DYDROGESTERONE) [Suspect]
     Indication: PRODUCT USED FOR UNKNOWN INDICATION
     Dosage: 1 DF ONCE PER DAY, ORAL
     Route: 048
  2. ESTRADIOL [Suspect]
     Indication: HOT FLUSH
     Dosage: 0.5 MG ONCE PER DAY
  3. BUDESONIDE [Suspect]
     Indication: GASTROINTESTINAL INFLAMMATION
     Dosage: 2 IN 1 D, ORAL
     Route: 048
     Dates: start: 20080101, end: 20110507

REACTIONS (11)
  - DECREASED APPETITE [None]
  - FATIGUE [None]
  - ALANINE AMINOTRANSFERASE INCREASED [None]
  - MUSCULAR WEAKNESS [None]
  - PROTHROMBIN TIME PROLONGED [None]
  - JAUNDICE [None]
  - GAMMA-GLUTAMYLTRANSFERASE INCREASED [None]
  - ASPARTATE AMINOTRANSFERASE INCREASED [None]
  - NAUSEA [None]
  - VOMITING [None]
  - CHOLESTATIC LIVER INJURY [None]
